FAERS Safety Report 7320147-X (Version None)
Quarter: 2011Q1

REPORT INFORMATION
  Report Type: 
  Country: None (occurrence: None)
  Receive Date: 20110214
  Receipt Date: 20110203
  Transmission Date: 20110831
  Serious: Yes (Other)
  Sender: FDA-Public Use
  Company Number: 2010P1003707

PATIENT
  Age: 65 Year
  Sex: Female
  Weight: 77.1115 kg

DRUGS (7)
  1. MESTINON [Suspect]
     Indication: OCULAR MYASTHENIA
     Dosage: PO
     Route: 048
     Dates: start: 20110104
  2. ADVIL [Concomitant]
  3. PYRIDOSTIGMINE BROMIDE [Suspect]
     Indication: OCULAR MYASTHENIA
     Dosage: 60 MG; TID; PO
     Route: 048
     Dates: start: 20100908, end: 20110103
  4. VITAMIN D [Concomitant]
  5. BREWERS YEAST [Concomitant]
  6. FISH OIL [Concomitant]
  7. SYNTRHOID [Concomitant]

REACTIONS (9)
  - VISION BLURRED [None]
  - DIARRHOEA [None]
  - MYASTHENIA GRAVIS [None]
  - MUSCULOSKELETAL STIFFNESS [None]
  - DIPLOPIA [None]
  - STRABISMUS [None]
  - FATIGUE [None]
  - DIZZINESS [None]
  - PALPITATIONS [None]
